FAERS Safety Report 4598864-4 (Version None)
Quarter: 2005Q1

REPORT INFORMATION
  Report Type: 
  Country: None (occurrence: None)
  Receive Date: 20050302
  Receipt Date: 20050302
  Transmission Date: 20050727
  Serious: Yes (Life-Threatening, Hospitalization, Disabling)
  Sender: FDA-Public Use
  Company Number: None

PATIENT
  Age: 46 Year
  Sex: Female
  Weight: 58.9676 kg

DRUGS (1)
  1. LEXAPRO [Suspect]
     Dosage: 5MG10MG20MG DAILY ORAL
     Route: 048
     Dates: start: 20020913, end: 20030101

REACTIONS (11)
  - ABNORMAL DREAMS [None]
  - ANXIETY [None]
  - BURNING SENSATION [None]
  - DRUG INTOLERANCE [None]
  - EMOTIONAL DISTRESS [None]
  - FEAR [None]
  - FEELINGS OF WORTHLESSNESS [None]
  - INTENTIONAL MISUSE [None]
  - SUICIDAL IDEATION [None]
  - THINKING ABNORMAL [None]
  - TREMOR [None]
